FAERS Safety Report 10930076 (Version 2)
Quarter: 2015Q2

REPORT INFORMATION
  Report Type: Spontaneous
  Country: JP (occurrence: JP)
  Receive Date: 20150319
  Receipt Date: 20150421
  Transmission Date: 20150821
  Serious: Yes (Death)
  Sender: FDA-Public Use
  Company Number: JP-ASTELLAS-2015US008978

PATIENT
  Sex: Female

DRUGS (1)
  1. AMBISOME [Suspect]
     Active Substance: AMPHOTERICIN B
     Indication: ENDOCARDITIS CANDIDA
     Route: 042
     Dates: start: 20150128

REACTIONS (1)
  - Cardiac disorder [Fatal]
